FAERS Safety Report 4627595-7 (Version None)
Quarter: 2005Q2

REPORT INFORMATION
  Report Type: 
  Country: None (occurrence: None)
  Receive Date: 20050405
  Receipt Date: 20050322
  Transmission Date: 20051028
  Serious: Yes (Other)
  Sender: FDA-Public Use
  Company Number: 200511182BCC

PATIENT
  Age: 71 Year
  Sex: Female
  Weight: 71.2147 kg

DRUGS (10)
  1. ALEVE [Suspect]
     Indication: OSTEOARTHRITIS
     Dosage: 220 MG, QD, ORAL
     Route: 048
  2. CALTRATE [Concomitant]
  3. ST. JOSEPH'S [Concomitant]
  4. OCUVITE [Concomitant]
  5. ALTACE [Concomitant]
  6. ZOCOR [Concomitant]
  7. FLEXAMIN [Concomitant]
  8. MIACALCIN [Concomitant]
  9. SPIRONOLACTONE W/ HYDROCHLOROTHIAZIDE [Concomitant]
  10. AMOXICILLIN [Concomitant]

REACTIONS (4)
  - BLEEDING TIME PROLONGED [None]
  - POST PROCEDURAL HAEMORRHAGE [None]
  - RETINAL DISORDER [None]
  - THROMBOSIS [None]
